FAERS Safety Report 8361326-2 (Version None)
Quarter: 2012Q2

REPORT INFORMATION
  Report Type: 
  Country: None (occurrence: None)
  Receive Date: 20120515
  Receipt Date: 20110804
  Transmission Date: 20120825
  Serious: No
  Sender: FDA-Public Use
  Company Number: US-ALEXION-A201101189

PATIENT
  Sex: Female

DRUGS (1)
  1. SOLIRIS [Suspect]
     Indication: PAROXYSMAL NOCTURNAL HAEMOGLOBINURIA
     Dosage: UNK
     Route: 042

REACTIONS (5)
  - WHITE BLOOD CELL COUNT DECREASED [None]
  - RETICULOCYTE COUNT INCREASED [None]
  - SERUM FERRITIN INCREASED [None]
  - MUSCULOSKELETAL DISCOMFORT [None]
  - HAEMOGLOBIN DECREASED [None]
